FAERS Safety Report 5370628-3 (Version None)
Quarter: 2007Q2

REPORT INFORMATION
  Report Type: 
  Country: None (occurrence: None)
  Receive Date: 20070618
  Receipt Date: 20060516
  Transmission Date: 20071010
  Serious: Yes (Other)
  Sender: FDA-Public Use
  Company Number: PHEH2006US03714

PATIENT
  Age: 66 Year
  Sex: Male

DRUGS (8)
  1. GLEEVEC [Suspect]
     Dosage: 400 MG, QD, ORAL
     Route: 048
     Dates: start: 20041201
  2. HUMALOG [Concomitant]
  3. DIPYRIDAMOLE [Concomitant]
  4. ATENOLOL [Concomitant]
  5. ZOLOFT [Concomitant]
  6. LIPITOR [Concomitant]
  7. ASCRIPTIN (ACETYLSALICYLIC ACID, ALUMINIUM HYDROXIDE, MAGNESIUM HYDROX [Concomitant]
  8. AVANDIA [Concomitant]

REACTIONS (3)
  - DIARRHOEA [None]
  - DYSPNOEA [None]
  - LUNG INFILTRATION [None]
